FAERS Safety Report 25600458 (Version 1)
Quarter: 2025Q3

REPORT INFORMATION
  Report Type: Spontaneous
  Country: US (occurrence: US)
  Receive Date: 20250724
  Receipt Date: 20250724
  Transmission Date: 20251021
  Serious: No
  Sender: SUNOVION
  Company Number: US-SMPA-2025SPA008841AA

PATIENT

DRUGS (9)
  1. ORGOVYX [Suspect]
     Active Substance: RELUGOLIX
     Indication: Product used for unknown indication
     Route: 048
  2. ORGOVYX [Suspect]
     Active Substance: RELUGOLIX
     Route: 048
  3. ATORVASTATIN [Concomitant]
     Active Substance: ATORVASTATIN
     Route: 065
  4. ASPIRIN [Concomitant]
     Active Substance: ASPIRIN
     Route: 065
  5. TAMSULOSIN [Concomitant]
     Active Substance: TAMSULOSIN
     Route: 065
  6. SILDENAFIL [Concomitant]
     Active Substance: SILDENAFIL
     Route: 065
  7. Nerve [Concomitant]
     Route: 065
  8. Redimind [Concomitant]
     Route: 065
  9. TRAMADOL [Concomitant]
     Active Substance: TRAMADOL
     Route: 065

REACTIONS (2)
  - Fall [Unknown]
  - Pain [Unknown]
